FAERS Safety Report 11259034 (Version 1)
Quarter: 2015Q3

REPORT INFORMATION
  Report Type: Spontaneous
  Country: US (occurrence: US)
  Receive Date: 20150710
  Receipt Date: 20150710
  Transmission Date: 20151125
  Serious: No
  Sender: FDA-Public Use
  Company Number: US-BAYER-2015-362520

PATIENT
  Age: 36 Year
  Sex: Male

DRUGS (1)
  1. FINACEA [Suspect]
     Active Substance: AZELAIC ACID
     Indication: ROSACEA
     Dosage: UNK, QD
     Route: 061

REACTIONS (4)
  - Skin disorder [Recovering/Resolving]
  - Pruritus [Recovering/Resolving]
  - Skin wrinkling [Recovering/Resolving]
  - Dry skin [Recovering/Resolving]
